FAERS Safety Report 7231649-9 (Version None)
Quarter: 2011Q1

REPORT INFORMATION
  Report Type: 
  Country: None (occurrence: None)
  Receive Date: 20110118
  Receipt Date: 20110114
  Transmission Date: 20110831
  Serious: Yes (Other)
  Sender: FDA-Public Use
  Company Number: US-PFIZER INC-2011010192

PATIENT
  Sex: Male
  Weight: 88 kg

DRUGS (2)
  1. SERAX [Concomitant]
     Indication: ANXIETY
     Dosage: UNK
  2. FELDENE [Suspect]
     Dosage: 20 MG, DAILY
     Route: 048
     Dates: start: 20080212, end: 20080501

REACTIONS (1)
  - HEART VALVE INCOMPETENCE [None]
